FAERS Safety Report 8517057-9 (Version None)
Quarter: 2012Q3

REPORT INFORMATION
  Report Type: 
  Country: None (occurrence: None)
  Receive Date: 20120718
  Receipt Date: 20120706
  Transmission Date: 20120928
  Serious: Yes (Hospitalization)
  Sender: FDA-Public Use
  Company Number: AU-BRISTOL-MYERS SQUIBB COMPANY-16753725

PATIENT
  Age: 68 Year
  Sex: Female
  Weight: 84 kg

DRUGS (8)
  1. PREDNISOLONE [Suspect]
  2. OXYCONTIN [Concomitant]
     Indication: PAIN
     Route: 048
  3. ORENCIA [Suspect]
     Indication: RHEUMATOID ARTHRITIS
     Dosage: LAST INF:04-JUN-2012.
     Route: 042
     Dates: start: 20110124
  4. AMOXICILLIN [Concomitant]
     Route: 048
     Dates: start: 20120625, end: 20120705
  5. METHOTREXATE [Suspect]
  6. ARAVA [Concomitant]
  7. NEXIUM [Concomitant]
  8. ENDEP [Concomitant]

REACTIONS (5)
  - HEADACHE [None]
  - ARTHRITIS [None]
  - INFLUENZA LIKE ILLNESS [None]
  - VOMITING [None]
  - PHOTOPHOBIA [None]
